FAERS Safety Report 19083509 (Version 1)
Quarter: 2021Q2

REPORT INFORMATION
  Report Type: Spontaneous
  Country: US (occurrence: US)
  Receive Date: 20210401
  Receipt Date: 20210401
  Transmission Date: 20210717
  Serious: No
  Sender: FDA-Public Use
  Company Number: US-PFIZER INC-2021351334

PATIENT
  Age: 82 Year
  Sex: Female

DRUGS (1)
  1. PROPANOLOL HCL [Suspect]
     Active Substance: PROPRANOLOL HYDROCHLORIDE
     Indication: HYPERTENSION
     Dosage: 2 DF, DAILY
     Route: 048
     Dates: start: 20200902, end: 20200904

REACTIONS (1)
  - Crying [Recovered/Resolved]

NARRATIVE: CASE EVENT DATE: 20200903
